FAERS Safety Report 4592854-3 (Version None)
Quarter: 2005Q1

REPORT INFORMATION
  Report Type: 
  Country: None (occurrence: None)
  Receive Date: 20050222
  Receipt Date: 20050208
  Transmission Date: 20050727
  Serious: Yes (Hospitalization, Other)
  Sender: FDA-Public Use
  Company Number: HQWYE789621JAN05

PATIENT
  Age: 78 Year
  Sex: Male

DRUGS (10)
  1. CORDARONE [Suspect]
     Dosage: 200 MG 5X PER 1 WK, ORAL
     Route: 048
     Dates: start: 20030615
  2. ATARAX [Suspect]
     Dosage: 2 UNITS, ORAL
     Route: 048
     Dates: start: 20040615
  3. AVODART [Suspect]
     Dosage: 0.5 MG 1X PER 1 DAY, ORAL
     Route: 048
     Dates: start: 20041115, end: 20041217
  4. AVODART [Suspect]
     Dosage: 0.5 MG 1X PER 1 DAY, ORAL
     Route: 048
     Dates: start: 20041228, end: 20050105
  5. LEVOTHYROXINE SODIUM [Suspect]
     Dosage: 150 UG 1X PER 1 DAY, ORAL
     Route: 048
     Dates: start: 20010615
  6. OMEPRAZOLE [Suspect]
     Dosage: 10 MG 1X PER 1 DAY,  ORAL
     Route: 048
     Dates: start: 20040615, end: 20050101
  7. PREVISCAN (FLUINDIONE, ) [Suspect]
     Dosage: 10 MG 1X PER 1 DAY, ORAL
     Route: 048
     Dates: start: 20040615, end: 20041217
  8. PREVISCAN (FLUINDIONE, ) [Suspect]
     Dosage: 10 MG 1X PER 1 DAY, ORAL
     Route: 048
     Dates: start: 20041220, end: 20041231
  9. FERROUS SULFATE TAB [Suspect]
     Dosage: 80 MG 1X PER 1 DAY, ORAL
     Route: 048
     Dates: start: 20040615
  10. ZESTORETIC [Concomitant]

REACTIONS (5)
  - DIALYSIS [None]
  - PRURITUS [None]
  - RASH MACULO-PAPULAR [None]
  - RENAL FAILURE ACUTE [None]
  - URTICARIA [None]
